FAERS Safety Report 16251024 (Version 1)
Quarter: 2019Q2

REPORT INFORMATION
  Report Type: Spontaneous
  Country: US (occurrence: US)
  Receive Date: 20190428
  Receipt Date: 20190428
  Transmission Date: 20190711
  Serious: No
  Sender: FDA-Public Use
  Company Number: None

PATIENT
  Age: 29 Year
  Sex: Female

DRUGS (1)
  1. GODDESS GARDEN ORGANICS EVERYDAY NATURAL SUNSCREEN SPF 30 [Suspect]
     Active Substance: TITANIUM DIOXIDE\ZINC OXIDE
     Indication: PROPHYLAXIS
     Dosage: ?          OTHER STRENGTH:SPF;QUANTITY:1 OUNCE;?
     Route: 061

REACTIONS (3)
  - Product physical consistency issue [None]
  - Therapeutic product ineffective [None]
  - Sunburn [None]

NARRATIVE: CASE EVENT DATE: 20190427
